FAERS Safety Report 4343537-6 (Version None)
Quarter: 2004Q2

REPORT INFORMATION
  Report Type: 
  Country: None (occurrence: None)
  Receive Date: 20040419
  Receipt Date: 20040408
  Transmission Date: 20050107
  Serious: Yes (Other)
  Sender: FDA-Public Use
  Company Number: A0506322A

PATIENT
  Age: 47 Year
  Sex: Female

DRUGS (3)
  1. NICORETTE [Suspect]
     Indication: EX-SMOKER
     Dosage: 4 MG/ TRANSBUCCAL
     Route: 002
     Dates: start: 20030501
  2. LIOTHYRONINE SODIUM [Concomitant]
  3. THYROID TAB [Concomitant]

REACTIONS (5)
  - ALOPECIA [None]
  - ANXIETY [None]
  - DEPRESSION [None]
  - DRUG DEPENDENCE [None]
  - INCREASED APPETITE [None]
